FAERS Safety Report 19359620 (Version 1)
Quarter: 2021Q2

REPORT INFORMATION
  Report Type: Spontaneous
  Country: IN (occurrence: IN)
  Receive Date: 20210601
  Receipt Date: 20210601
  Transmission Date: 20210717
  Serious: Yes (Death, Life-Threatening, Hospitalization)
  Sender: FDA-Public Use
  Company Number: IN-STRIDES ARCOLAB LIMITED-2021SP005966

PATIENT
  Age: 45 Year
  Sex: Male

DRUGS (22)
  1. VANCOMYCIN [Suspect]
     Active Substance: VANCOMYCIN
     Dosage: UNK, TAPERED AND DISCONTINUED
     Route: 065
     Dates: start: 201903, end: 201903
  2. BORTEZOMIB. [Suspect]
     Active Substance: BORTEZOMIB
     Dosage: UNK, MAINTENANCE THERAPY
     Route: 065
     Dates: start: 201808
  3. MELPHALAN. [Suspect]
     Active Substance: MELPHALAN
     Indication: PRODUCT USED FOR UNKNOWN INDICATION
     Dosage: UNK, HIGH DOSE
     Route: 065
     Dates: start: 20190303, end: 20190303
  4. COLISTIN [Suspect]
     Active Substance: COLISTIN
     Indication: NOSOCOMIAL INFECTION
     Dosage: UNK, TAPERED AND DISCONTINUED
     Route: 065
     Dates: start: 201903, end: 201903
  5. MEROPENEM. [Suspect]
     Active Substance: MEROPENEM
     Indication: FEBRILE NEUTROPENIA
     Dosage: UNK
     Route: 065
     Dates: start: 201903, end: 201903
  6. AMPHOTERICIN B, LIPOSOME [Suspect]
     Active Substance: AMPHOTERICIN B
     Indication: PYREXIA
     Dosage: UNK
     Route: 065
     Dates: start: 201903, end: 201903
  7. VANCOMYCIN [Suspect]
     Active Substance: VANCOMYCIN
     Indication: PYREXIA
     Dosage: UNK
     Route: 065
     Dates: start: 201903, end: 201903
  8. DEXAMETHASONE. [Suspect]
     Active Substance: DEXAMETHASONE
     Dosage: UNK, TAPERED AND DICSONTINUED
     Route: 065
     Dates: start: 201903, end: 201903
  9. LENALIDOMIDE [Suspect]
     Active Substance: LENALIDOMIDE
     Indication: PLASMA CELL MYELOMA
     Dosage: UNK, 6 CYCLES
     Route: 065
     Dates: start: 2018, end: 2018
  10. DEXAMETHASONE. [Suspect]
     Active Substance: DEXAMETHASONE
     Dosage: 20 MILLIGRAM PER WEEK (MAINTENANCE THERAPY)
     Route: 065
     Dates: start: 201808, end: 201903
  11. PIPERACILLIN/TAZOBACTAM [Suspect]
     Active Substance: PIPERACILLIN SODIUM\TAZOBACTAM SODIUM
     Indication: FEBRILE NEUTROPENIA
     Dosage: UNK
     Route: 065
     Dates: start: 201903, end: 201903
  12. DEXAMETHASONE. [Suspect]
     Active Substance: DEXAMETHASONE
     Indication: PLASMA CELL MYELOMA
     Dosage: UNK, 6 CYCLES
     Route: 065
     Dates: start: 2018, end: 2018
  13. AMPHOTERICIN B, LIPOSOME [Suspect]
     Active Substance: AMPHOTERICIN B
     Dosage: UNK, TAPERED AND DISCONTINUED
     Route: 065
     Dates: start: 201903, end: 201903
  14. AZITHROMYCIN ANHYDROUS. [Suspect]
     Active Substance: AZITHROMYCIN ANHYDROUS
     Indication: NOSOCOMIAL INFECTION
     Dosage: UNK
     Route: 065
     Dates: start: 201903
  15. CASPOFUNGIN [Suspect]
     Active Substance: CASPOFUNGIN
     Indication: FEBRILE NEUTROPENIA
     Dosage: UNK
     Route: 065
     Dates: start: 201903
  16. TEICOPLANIN [Suspect]
     Active Substance: TEICOPLANIN
     Indication: NOSOCOMIAL INFECTION
     Dosage: UNK
     Route: 065
     Dates: start: 201903
  17. PREDNISOLONE. [Suspect]
     Active Substance: PREDNISOLONE
     Indication: ACUTE RESPIRATORY DISTRESS SYNDROME
     Dosage: 1 MG/KG/DAY
     Route: 065
     Dates: start: 201903, end: 201903
  18. PREDNISOLONE. [Suspect]
     Active Substance: PREDNISOLONE
     Indication: ENGRAFTMENT SYNDROME
     Dosage: UNK, TAPERED AND DISCONTINUED
     Route: 065
     Dates: start: 201903, end: 201903
  19. BORTEZOMIB. [Suspect]
     Active Substance: BORTEZOMIB
     Indication: PLASMA CELL MYELOMA
     Dosage: UNK, 6 CYCLES
     Route: 065
     Dates: start: 2018, end: 2018
  20. MEROPENEM. [Suspect]
     Active Substance: MEROPENEM
     Dosage: UNK, TAPERED AND DISCONTINUED
     Route: 065
     Dates: start: 201903, end: 201903
  21. COLISTIN [Suspect]
     Active Substance: COLISTIN
     Indication: FEBRILE NEUTROPENIA
     Dosage: UNK
     Route: 065
     Dates: start: 201903, end: 201903
  22. TIGECYCLINE. [Suspect]
     Active Substance: TIGECYCLINE
     Indication: NOSOCOMIAL INFECTION
     Dosage: UNK
     Route: 065
     Dates: start: 201903

REACTIONS (6)
  - Nosocomial infection [Unknown]
  - Off label use [Unknown]
  - Lower respiratory tract infection [Fatal]
  - Metapneumovirus infection [Fatal]
  - Acute kidney injury [Fatal]
  - Shock [Fatal]

NARRATIVE: CASE EVENT DATE: 201903
